FAERS Safety Report 5793287-4 (Version None)
Quarter: 2008Q2

REPORT INFORMATION
  Report Type: 
  Country: None (occurrence: None)
  Receive Date: 20080627
  Receipt Date: 20080616
  Transmission Date: 20081010
  Serious: Yes (Other)
  Sender: FDA-Public Use
  Company Number: US-ROCHE-570547

PATIENT
  Age: 7 Year
  Sex: Male

DRUGS (1)
  1. TAMIFLU [Suspect]
     Indication: INFLUENZA
     Route: 065
     Dates: start: 20080401

REACTIONS (4)
  - DELUSION [None]
  - HALLUCINATION [None]
  - PANIC ATTACK [None]
  - SLEEP TERROR [None]
